FAERS Safety Report 5756618-7 (Version None)
Quarter: 2008Q2

REPORT INFORMATION
  Report Type: 
  Country: None (occurrence: None)
  Receive Date: 20080603
  Receipt Date: 20080529
  Transmission Date: 20081010
  Serious: Yes (Life-Threatening, Hospitalization, Other)
  Sender: FDA-Public Use
  Company Number: DE-BRISTOL-MYERS SQUIBB COMPANY-14212195

PATIENT
  Age: 75 Year
  Sex: Female

DRUGS (1)
  1. GLUCOPHAGE [Suspect]
     Dosage: 1 DOSAGE FORM = EITHER 850MG OR 1000MG

REACTIONS (3)
  - ACUTE PRERENAL FAILURE [None]
  - GASTROENTERITIS [None]
  - LACTIC ACIDOSIS [None]
